FAERS Safety Report 8537232-7 (Version None)
Quarter: 2012Q3

REPORT INFORMATION
  Report Type: 
  Country: None (occurrence: None)
  Receive Date: 20120725
  Receipt Date: 20120717
  Transmission Date: 20120928
  Serious: Yes (Hospitalization)
  Sender: FDA-Public Use
  Company Number: US-ELI_LILLY_AND_COMPANY-US201206004704

PATIENT
  Sex: Female

DRUGS (1)
  1. FORTEO [Suspect]
     Indication: OSTEOPOROSIS
     Dosage: 20 UG, OTHER
     Route: 065
     Dates: start: 20120312

REACTIONS (13)
  - BLOOD GLUCOSE ABNORMAL [None]
  - BLADDER OPERATION [None]
  - FEAR OF FALLING [None]
  - INAPPROPRIATE SCHEDULE OF DRUG ADMINISTRATION [None]
  - GASTROINTESTINAL HAEMORRHAGE [None]
  - ASPIRATION [None]
  - NEPHRITIS [None]
  - ADVERSE DRUG REACTION [None]
  - HIATUS HERNIA [None]
  - ADVERSE EVENT [None]
  - CYSTITIS [None]
  - URINARY BLADDER HAEMORRHAGE [None]
  - HAEMORRHAGE [None]
